FAERS Safety Report 5258432-8 (Version None)
Quarter: 2007Q1

REPORT INFORMATION
  Report Type: 
  Country: None (occurrence: None)
  Receive Date: 20070308
  Receipt Date: 20070226
  Transmission Date: 20070707
  Serious: Yes (Hospitalization)
  Sender: FDA-Public Use
  Company Number: IL-AMGEN-UK213525

PATIENT
  Sex: Male

DRUGS (14)
  1. ARANESP [Suspect]
     Indication: RENAL FAILURE CHRONIC
     Route: 058
     Dates: start: 20061101
  2. EPREX [Suspect]
     Route: 058
     Dates: start: 20020319
  3. FOLIC ACID [Concomitant]
     Route: 065
  4. TRIMETHOBENZAMIDE HYDROCHLORIDE [Concomitant]
     Route: 065
  5. ASCORBIC ACID [Concomitant]
     Route: 065
  6. GLIPIZIDE [Concomitant]
     Route: 065
  7. SINEMET [Concomitant]
     Route: 065
  8. CLONEX [Concomitant]
     Route: 065
  9. CALTRATE [Concomitant]
     Route: 065
  10. ENALAPRIL MALEATE [Concomitant]
     Route: 065
  11. ACARBOSE [Concomitant]
     Route: 065
  12. VENOFER [Concomitant]
     Route: 065
  13. ASPIRIN [Concomitant]
     Route: 065
  14. CARBIDOPA AND LEVODOPA [Concomitant]
     Route: 065
     Dates: start: 20020303

REACTIONS (3)
  - ANTI-ERYTHROPOIETIN ANTIBODY POSITIVE [None]
  - APLASIA PURE RED CELL [None]
  - DRUG INEFFECTIVE [None]
